FAERS Safety Report 25725839 (Version 1)
Quarter: 2025Q3

REPORT INFORMATION
  Report Type: Spontaneous
  Country: EU (occurrence: EU)
  Receive Date: 20250826
  Receipt Date: 20250826
  Transmission Date: 20251021
  Serious: Yes (Hospitalization, Other)
  Sender: AUROBINDO
  Company Number: EU-SANDOZ-NVSC2023ES125521

PATIENT
  Age: 60 Year
  Sex: Male
  Weight: 80 kg

DRUGS (28)
  1. CARBOPLATIN [Suspect]
     Active Substance: CARBOPLATIN
     Indication: Non-small cell lung cancer
     Route: 042
     Dates: start: 20230125
  2. CARBOPLATIN [Suspect]
     Active Substance: CARBOPLATIN
     Route: 042
     Dates: start: 20230426
  3. PEMETREXED [Suspect]
     Active Substance: PEMETREXED
     Indication: Non-small cell lung cancer
     Route: 042
     Dates: start: 20230125
  4. PEMETREXED [Suspect]
     Active Substance: PEMETREXED
     Route: 042
     Dates: start: 20230426
  5. PEMETREXED [Suspect]
     Active Substance: PEMETREXED
     Route: 042
     Dates: start: 20230517
  6. OCIPERLIMAB [Suspect]
     Active Substance: OCIPERLIMAB
     Indication: Non-small cell lung cancer metastatic
     Route: 042
     Dates: start: 20230125
  7. OCIPERLIMAB [Suspect]
     Active Substance: OCIPERLIMAB
     Route: 042
     Dates: start: 20230426
  8. TISLELIZUMAB [Suspect]
     Active Substance: TISLELIZUMAB
     Indication: Non-small cell lung cancer metastatic
     Route: 042
     Dates: start: 20230125
  9. TISLELIZUMAB [Suspect]
     Active Substance: TISLELIZUMAB
     Route: 042
     Dates: start: 20230426
  10. TISLELIZUMAB [Suspect]
     Active Substance: TISLELIZUMAB
     Route: 042
     Dates: start: 20230517
  11. MOVICOL [Concomitant]
     Active Substance: POLYETHYLENE GLYCOL 3350\POTASSIUM CHLORIDE\SODIUM BICARBONATE\SODIUM CHLORIDE
     Indication: Constipation
     Route: 065
     Dates: start: 20230418
  12. Anso [Concomitant]
     Indication: Haemorrhoids
     Route: 065
     Dates: start: 20230412
  13. NITROGLYCERIN [Concomitant]
     Active Substance: NITROGLYCERIN
     Indication: Haemorrhoids
     Route: 065
     Dates: start: 20230412
  14. FILGRASTIM [Concomitant]
     Active Substance: FILGRASTIM
     Indication: Neutropenia
     Route: 065
     Dates: start: 20230419, end: 20230505
  15. FOLIC ACID [Concomitant]
     Active Substance: FOLIC ACID
     Indication: Product used for unknown indication
     Route: 065
     Dates: start: 20230426, end: 20230614
  16. DIAZEPAM [Concomitant]
     Active Substance: DIAZEPAM
     Indication: Insomnia
     Route: 065
     Dates: start: 20230202
  17. ONDANSETRON [Concomitant]
     Active Substance: ONDANSETRON
     Indication: Nausea
     Route: 065
     Dates: start: 20230216
  18. VALIUM [Concomitant]
     Active Substance: DIAZEPAM
     Indication: Thrombocytopenia
     Route: 065
     Dates: start: 20230506
  19. VALIUM [Concomitant]
     Active Substance: DIAZEPAM
     Route: 065
  20. PREDNISONE [Concomitant]
     Active Substance: PREDNISONE
     Indication: Insomnia
     Route: 065
     Dates: start: 20230614, end: 20230630
  21. CYANOCOBALAMIN [Concomitant]
     Active Substance: CYANOCOBALAMIN
     Indication: Product used for unknown indication
     Route: 065
     Dates: start: 20230607
  22. CLOTRIMAZOLE [Concomitant]
     Active Substance: CLOTRIMAZOLE
     Indication: Balanoposthitis
     Route: 065
     Dates: start: 20230412
  23. NYSTATIN [Concomitant]
     Active Substance: NYSTATIN
     Indication: Oral candidiasis
     Route: 065
     Dates: start: 20230522
  24. ACETAMINOPHEN [Concomitant]
     Active Substance: ACETAMINOPHEN
     Indication: Pain
     Route: 065
     Dates: start: 20230613, end: 20230614
  25. METAMIZOLE [Concomitant]
     Active Substance: METAMIZOLE
     Indication: Oral candidiasis
     Route: 065
     Dates: start: 20230419, end: 20230505
  26. CEFOTAXIME [Concomitant]
     Active Substance: CEFOTAXIME SODIUM
     Indication: Pseudocellulitis
     Route: 065
     Dates: start: 20230506
  27. Hodernal [Concomitant]
     Indication: Pseudocellulitis
     Route: 065
     Dates: start: 20230613, end: 20230614
  28. FLUIMUCIL [Concomitant]
     Active Substance: ACETYLCYSTEINE
     Indication: Cough
     Route: 065
     Dates: start: 20230426, end: 20230614

REACTIONS (2)
  - Thrombocytopenia [Recovered/Resolved]
  - Febrile neutropenia [Recovered/Resolved]

NARRATIVE: CASE EVENT DATE: 20230505
